FAERS Safety Report 7034868-X (Version None)
Quarter: 2010Q4

REPORT INFORMATION
  Report Type: 
  Country: None (occurrence: None)
  Receive Date: 20101008
  Receipt Date: 20100930
  Transmission Date: 20110411
  Serious: No
  Sender: FDA-Public Use
  Company Number: US-PFIZER INC-2010096800

PATIENT
  Sex: Female

DRUGS (1)
  1. LYRICA [Suspect]
     Indication: SKIN BURNING SENSATION
     Dosage: 25 MG, TWICE DAILY
     Route: 048
     Dates: start: 20100811

REACTIONS (3)
  - BURNING SENSATION [None]
  - PRURITUS [None]
  - SOMNOLENCE [None]
